FAERS Safety Report 5813321-2 (Version None)
Quarter: 2008Q3

REPORT INFORMATION
  Report Type: 
  Country: None (occurrence: None)
  Receive Date: 20080717
  Receipt Date: 20080716
  Transmission Date: 20090109
  Serious: Yes (Other)
  Sender: FDA-Public Use
  Company Number: A0737854A

PATIENT
  Age: 77 Year
  Sex: Female
  Weight: 86 kg

DRUGS (6)
  1. ALLI [Suspect]
     Indication: WEIGHT CONTROL
     Dates: start: 20080701, end: 20080704
  2. THERAGRAN M [Concomitant]
  3. CALCIUM WITH VITAMIN D [Concomitant]
  4. FOSAMAX [Concomitant]
     Dosage: 91.37MG WEEKLY
  5. SIMVASTATIN [Concomitant]
  6. ASPIRIN [Concomitant]
     Dosage: 81MG PER DAY

REACTIONS (2)
  - RECTAL DISCHARGE [None]
  - RECTAL HAEMORRHAGE [None]
